FAERS Safety Report 24359666 (Version 3)
Quarter: 2024Q4

REPORT INFORMATION
  Report Type: Spontaneous
  Country: JP (occurrence: JP)
  Receive Date: 20240924
  Receipt Date: 20241215
  Transmission Date: 20250115
  Serious: Yes (Death, Life-Threatening)
  Sender: Unknown Manufacturer
  Company Number: JP-MTPC-MTPC2024-0019617

PATIENT
  Age: 78 Year
  Sex: Female

DRUGS (8)
  1. OZAGREL [Suspect]
     Active Substance: OZAGREL
     Dosage: UNK
     Route: 065
     Dates: start: 20210201, end: 20210207
  2. EDARAVONE [Suspect]
     Active Substance: EDARAVONE
     Indication: Cerebral infarction
     Dosage: 30 MILLIGRAM, BID
     Route: 041
     Dates: start: 20210201, end: 20210207
  3. SODIUM CHLORIDE [Suspect]
     Active Substance: SODIUM CHLORIDE
     Dosage: UNK
     Route: 051
     Dates: start: 20210201, end: 20210208
  4. FUROSEMIDE [Concomitant]
     Active Substance: FUROSEMIDE
     Dosage: 20 MILLIGRAM, QD
     Route: 048
     Dates: start: 20210129, end: 20210131
  5. LEBENIN-S [Concomitant]
     Dosage: UNK
     Route: 048
     Dates: start: 20210129, end: 20210131
  6. MAGNESIUM OXIDE [Concomitant]
     Active Substance: MAGNESIUM OXIDE
     Dosage: 1500 MILLIGRAM, QD
     Route: 048
     Dates: start: 20210129, end: 20210131
  7. OPDIVO [Concomitant]
     Active Substance: NIVOLUMAB
     Dosage: UNK
     Route: 065
     Dates: start: 20210114
  8. PREDNISOLONE [Concomitant]
     Active Substance: PREDNISOLONE
     Dosage: 5 MILLIGRAM, QD
     Route: 048
     Dates: start: 20210129, end: 20210131

REACTIONS (1)
  - Thrombocytopenia [Fatal]

NARRATIVE: CASE EVENT DATE: 20210208
